FAERS Safety Report 18857929 (Version 2)
Quarter: 2022Q3

REPORT INFORMATION
  Report Type: Spontaneous
  Country: US (occurrence: US)
  Receive Date: 20210208
  Receipt Date: 20220821
  Transmission Date: 20221027
  Serious: No
  Sender: FDA-Public Use
  Company Number: US-SA-SAC20210205000918

PATIENT
  Age: 77 Year
  Sex: Female

DRUGS (10)
  1. DUPIXENT [Suspect]
     Active Substance: DUPILUMAB
     Indication: Dermatitis atopic
     Dosage: 300MG QOW
     Route: 058
  2. BIOTIN [Concomitant]
     Active Substance: BIOTIN
  3. FOLIC ACID [Concomitant]
     Active Substance: FOLIC ACID
  4. VITAMIN D3 [Concomitant]
     Active Substance: CHOLECALCIFEROL
  5. METHOTREXATE [Concomitant]
     Active Substance: METHOTREXATE
  6. HYDROCORTISONE [Concomitant]
     Active Substance: HYDROCORTISONE
  7. KETOCONAZOLE [Concomitant]
     Active Substance: KETOCONAZOLE
  8. ITRACONAZOLE [Concomitant]
     Active Substance: ITRACONAZOLE
  9. POISON IVY [Concomitant]
     Active Substance: TOXICODENDRON RADICANS LEAF
  10. DERMA SMOOTH [Concomitant]

REACTIONS (3)
  - Rash macular [Unknown]
  - Burning sensation [Unknown]
  - Pain of skin [Unknown]

NARRATIVE: CASE EVENT DATE: 20210113
